FAERS Safety Report 24898689 (Version 2)
Quarter: 2025Q1

REPORT INFORMATION
  Report Type: Spontaneous
  Country: US (occurrence: US)
  Receive Date: 20250129
  Receipt Date: 20250306
  Transmission Date: 20250409
  Serious: No
  Sender: ROCHE
  Company Number: US-ROCHE-10000190545

PATIENT
  Sex: Female
  Weight: 66.68 kg

DRUGS (1)
  1. ACTEMRA ACTPEN [Suspect]
     Active Substance: TOCILIZUMAB
     Indication: Rheumatoid arthritis
     Dosage: STRENGTH: 162 MG/ 0.9 ML
     Route: 058
     Dates: start: 202406

REACTIONS (5)
  - Drug ineffective [Unknown]
  - Weight increased [Unknown]
  - Limb mass [Unknown]
  - Pain [Unknown]
  - Breast mass [Unknown]
